FAERS Safety Report 23085075 (Version 3)
Quarter: 2023Q4

REPORT INFORMATION
  Report Type: Other
  Country: FR (occurrence: FR)
  Receive Date: 20231019
  Receipt Date: 20231026
  Transmission Date: 20240109
  Serious: Yes (Other)
  Sender: FDA-Public Use
  Company Number: FR-002147023-PHHY2012FR136303

PATIENT
  Age: 56 Year
  Sex: Male

DRUGS (3)
  1. MYCOPHENOLATE MOFETIL [Suspect]
     Active Substance: MYCOPHENOLATE MOFETIL
     Indication: Immunosuppression
     Route: 065
  2. CYCLOSPORINE [Suspect]
     Active Substance: CYCLOSPORINE
     Indication: Immunosuppression
     Dosage: TARGET BLOOD LEVEL: 280-320 NG/ML
     Route: 065
  3. PREDNISOLONE [Suspect]
     Active Substance: PREDNISOLONE
     Indication: Immunosuppression
     Route: 065

REACTIONS (11)
  - Hallucination [Unknown]
  - Acute pulmonary oedema [Unknown]
  - Alternaria infection [Recovered/Resolved]
  - Fungal disease carrier [Unknown]
  - Skin necrosis [Unknown]
  - Mediastinitis [Unknown]
  - Condition aggravated [Unknown]
  - Phaeohyphomycosis [Recovered/Resolved]
  - Confusional state [Unknown]
  - Endocarditis bacterial [Unknown]
  - Pneumonia bacterial [Unknown]
